FAERS Safety Report 4372948-8 (Version None)
Quarter: 2004Q2

REPORT INFORMATION
  Report Type: 
  Country: None (occurrence: None)
  Receive Date: 20040603
  Receipt Date: 20040526
  Transmission Date: 20050107
  Serious: Yes (Other)
  Sender: FDA-Public Use
  Company Number: 2004215570US

PATIENT
  Age: 43 Year
  Sex: Female

DRUGS (2)
  1. CELEBREX [Suspect]
     Indication: JOINT STIFFNESS
     Dosage: 200 MG, BID,
     Dates: start: 20040101, end: 20040501
  2. TYLENOL [Concomitant]

REACTIONS (2)
  - ASTIGMATISM [None]
  - BLINDNESS UNILATERAL [None]
